FAERS Safety Report 5223074-7 (Version None)
Quarter: 2007Q1

REPORT INFORMATION
  Report Type: 
  Country: None (occurrence: None)
  Receive Date: 20070129
  Receipt Date: 20070117
  Transmission Date: 20070707
  Serious: Yes (Hospitalization, Other)
  Sender: FDA-Public Use
  Company Number: US-PFIZER INC-2007005121

PATIENT
  Sex: Female
  Weight: 63.5 kg

DRUGS (6)
  1. CHANTIX [Suspect]
     Indication: SMOKING CESSATION THERAPY
     Dates: start: 20070103, end: 20070115
  2. FENTANYL [Concomitant]
  3. RITALIN [Concomitant]
  4. REGLAN [Concomitant]
  5. OMEPRAZOLE [Concomitant]
  6. CYMBALTA [Concomitant]

REACTIONS (15)
  - ASTHENIA [None]
  - CHOKING [None]
  - CONTUSION [None]
  - CORONARY ARTERY THROMBOSIS [None]
  - DIZZINESS [None]
  - DYSGEUSIA [None]
  - EPISTAXIS [None]
  - INFREQUENT BOWEL MOVEMENTS [None]
  - NAUSEA [None]
  - OXYGEN SATURATION DECREASED [None]
  - PAIN [None]
  - PRURITUS [None]
  - RESPIRATORY TRACT INFECTION [None]
  - SOMNOLENCE [None]
  - SWELLING [None]
